FAERS Safety Report 8370149-X (Version None)
Quarter: 2012Q2

REPORT INFORMATION
  Report Type: 
  Country: None (occurrence: None)
  Receive Date: 20120518
  Receipt Date: 20120510
  Transmission Date: 20120825
  Serious: Yes (Hospitalization, Other)
  Sender: FDA-Public Use
  Company Number: US-JNJFOC-20110703968

PATIENT
  Sex: Male

DRUGS (1)
  1. LEVAQUIN [Suspect]
     Indication: UPPER RESPIRATORY TRACT INFECTION
     Route: 048

REACTIONS (5)
  - STEVENS-JOHNSON SYNDROME [None]
  - DRY EYE [None]
  - CONJUNCTIVITIS [None]
  - URETHRITIS [None]
  - BRONCHIAL HYPERREACTIVITY [None]
